FAERS Safety Report 6045659-0 (Version None)
Quarter: 2009Q1

REPORT INFORMATION
  Report Type: 
  Country: None (occurrence: None)
  Receive Date: 20090121
  Receipt Date: 20090116
  Transmission Date: 20090719
  Serious: Yes (Death)
  Sender: FDA-Public Use
  Company Number: DE-WYE-G02948709

PATIENT
  Sex: Male

DRUGS (1)
  1. TYGACIL [Suspect]
     Route: 042
     Dates: start: 20081219, end: 20090102

REACTIONS (1)
  - PANCREATITIS [None]
